FAERS Safety Report 11540502 (Version 1)
Quarter: 2015Q3

REPORT INFORMATION
  Report Type: Spontaneous
  Country: US (occurrence: US)
  Receive Date: 20150923
  Receipt Date: 20150923
  Transmission Date: 20151125
  Serious: No
  Sender: FDA-Public Use
  Company Number: US-BEH-2015048554

PATIENT
  Sex: Female
  Weight: 96 kg

DRUGS (4)
  1. XOLAIR [Concomitant]
     Active Substance: OMALIZUMAB
  2. STERILE WATER [Concomitant]
     Active Substance: WATER
  3. PRIVIGEN [Suspect]
     Active Substance: HUMAN IMMUNOGLOBULIN G
     Indication: HYPOGAMMAGLOBULINAEMIA
     Dosage: 10 GM VIAL
     Route: 042
  4. BACTRIM [Concomitant]
     Active Substance: SULFAMETHOXAZOLE\TRIMETHOPRIM

REACTIONS (1)
  - Sinusitis [Unknown]
